FAERS Safety Report 7251254-8 (Version None)
Quarter: 2011Q1

REPORT INFORMATION
  Report Type: 
  Country: None (occurrence: None)
  Receive Date: 20110128
  Receipt Date: 20110117
  Transmission Date: 20110831
  Serious: Yes (Other)
  Sender: FDA-Public Use
  Company Number: CA-JNJFOC-20110104884

PATIENT
  Sex: Male
  Weight: 84 kg

DRUGS (8)
  1. FOLIC ACID [Concomitant]
     Route: 065
  2. CRESTOR [Concomitant]
     Route: 065
  3. REMICADE [Suspect]
     Indication: PRODUCT USED FOR UNKNOWN INDICATION
     Dosage: 400.0
     Route: 042
  4. METHOTREXATE [Concomitant]
     Route: 048
  5. NAPROXEN [Concomitant]
     Dosage: PRN
     Route: 065
  6. PLAVIX [Concomitant]
     Route: 065
  7. ASA [Concomitant]
     Dosage: EC ENTERIC COATED
     Route: 048
  8. METOPROLOL [Concomitant]
     Route: 065

REACTIONS (1)
  - DEVICE MALFUNCTION [None]
